FAERS Safety Report 5524264-6 (Version None)
Quarter: 2007Q4

REPORT INFORMATION
  Report Type: 
  Country: None (occurrence: None)
  Receive Date: 20071121
  Receipt Date: 20071112
  Transmission Date: 20080405
  Serious: Yes (Death, Other)
  Sender: FDA-Public Use
  Company Number: US-PFIZER INC-2007095035

PATIENT
  Sex: Female

DRUGS (6)
  1. GEODON [Suspect]
     Indication: BIPOLAR II DISORDER
  2. LAMICTAL [Concomitant]
     Dosage: DAILY DOSE:200MG
  3. CYMBALTA [Concomitant]
     Dosage: DAILY DOSE:120MG
  4. SEROQUEL [Concomitant]
     Dosage: DAILY DOSE:200MG
  5. ALBUTEROL [Concomitant]
     Dosage: DAILY DOSE:250MG
  6. PROVIGIL [Concomitant]

REACTIONS (2)
  - CONVULSION [None]
  - DYSPNOEA [None]
